FAERS Safety Report 6491882-0 (Version None)
Quarter: 2009Q4

REPORT INFORMATION
  Report Type: 
  Country: None (occurrence: None)
  Receive Date: 20091125
  Receipt Date: 20090814
  Transmission Date: 20100525
  Serious: Yes (Other)
  Sender: FDA-Public Use
  Company Number: 2009BH012844

PATIENT
  Age: 28 Year
  Sex: Female

DRUGS (7)
  1. DIANEAL [Suspect]
     Indication: PERITONEAL DIALYSIS
     Dosage: 12.8 L; EVERY DAY; IP
     Route: 033
     Dates: start: 19980101
  2. TYLENOL (CAPLET) [Concomitant]
  3. ADVIL [Concomitant]
  4. FERROUS SULFATE TAB [Concomitant]
  5. FOLIC ACID [Concomitant]
  6. RENAGEL [Concomitant]
  7. VITAMIN B6 [Concomitant]

REACTIONS (1)
  - PERITONITIS BACTERIAL [None]
